FAERS Safety Report 5034830-2 (Version None)
Quarter: 2006Q2

REPORT INFORMATION
  Report Type: 
  Country: None (occurrence: None)
  Receive Date: 20060621
  Receipt Date: 20060606
  Transmission Date: 20061013
  Serious: Yes (Other)
  Sender: FDA-Public Use
  Company Number: GXKR2006GB03280

PATIENT
  Age: 65 Year
  Sex: Female

DRUGS (7)
  1. FLUOXETINE [Suspect]
     Indication: DEPRESSION
     Dosage: SEE IMAGE
     Route: 048
     Dates: start: 20050725, end: 20050915
  2. AUGMENTIN '125' [Concomitant]
  3. CLARITHROMYCIN [Concomitant]
  4. MONTELEUKAST(MONTELEUKAST) [Concomitant]
  5. PREDNISOLONE [Concomitant]
  6. QUETIAPINE FUMARATE [Concomitant]
  7. TAZOCIN (PIPERACILLIN SODIUM, TAZOBACTAM SODIUM) [Concomitant]

REACTIONS (4)
  - BRONCHIOLITIS [None]
  - DYSPNOEA [None]
  - INTERSTITIAL LUNG DISEASE [None]
  - PULMONARY EOSINOPHILIA [None]
